FAERS Safety Report 20109266 (Version 1)
Quarter: 2021Q4

REPORT INFORMATION
  Report Type: Spontaneous
  Country: US (occurrence: None)
  Receive Date: 20211124
  Receipt Date: 20211124
  Transmission Date: 20220303
  Serious: Yes (Life-Threatening, Hospitalization)
  Sender: FDA-Public Use
  Company Number: None

PATIENT
  Age: 52 Year
  Sex: Male
  Weight: 95.6 kg

DRUGS (6)
  1. BARICITINIB [Suspect]
     Active Substance: BARICITINIB
     Indication: COVID-19
     Dosage: FREQUENCY : DAILY;?
     Route: 048
     Dates: start: 20211107, end: 20211111
  2. ACETAMINOPHEN [Concomitant]
     Active Substance: ACETAMINOPHEN
     Dates: start: 20211110, end: 20211113
  3. BENZONATATE [Concomitant]
     Active Substance: BENZONATATE
     Dates: start: 20211107, end: 20211115
  4. DEXAMETHASONE [Concomitant]
     Active Substance: DEXAMETHASONE
     Dates: start: 20211107, end: 20211115
  5. ENOXAPARIN [Concomitant]
     Active Substance: ENOXAPARIN
     Dates: start: 20211107, end: 20211111
  6. REMDESIVIR [Concomitant]
     Active Substance: REMDESIVIR
     Dates: start: 20211107, end: 20211116

REACTIONS (5)
  - Fibrin D dimer increased [None]
  - Pulmonary embolism [None]
  - Atelectasis [None]
  - Pulmonary infarction [None]
  - Lung opacity [None]

NARRATIVE: CASE EVENT DATE: 20211111
